FAERS Safety Report 17508925 (Version 2)
Quarter: 2020Q2

REPORT INFORMATION
  Report Type: Spontaneous
  Country: JP (occurrence: JP)
  Receive Date: 20200306
  Receipt Date: 20200520
  Transmission Date: 20200713
  Serious: Yes (Death, Other)
  Sender: FDA-Public Use
  Company Number: JP-PFIZER INC-2020096835

PATIENT
  Age: 65 Year
  Sex: Female
  Weight: 48.4 kg

DRUGS (25)
  1. VANCOMYCIN HYDROCHLORIDE. [Concomitant]
     Active Substance: VANCOMYCIN HYDROCHLORIDE
     Dosage: UNK
     Route: 041
  2. MEDLENIK [Concomitant]
     Active Substance: CUPRIC SULFATE\FERRIC CHLORIDE\MANGANESE CHLORIDE\POTASSIUM IODIDE\ZINC SULFATE
     Dosage: UNK
  3. NOVOLIN NOS [Concomitant]
     Active Substance: INSULIN HUMAN
     Dosage: UNK
  4. KAYTWO N [Concomitant]
     Active Substance: MENATETRENONE
     Dosage: UNK
     Route: 042
  5. AMBISOME [Suspect]
     Active Substance: AMPHOTERICIN B
     Indication: FUNGAL INFECTION
     Dosage: 124 MG, 1X/DAY
     Route: 041
     Dates: start: 20200117, end: 20200124
  6. PROGRAF [Concomitant]
     Active Substance: TACROLIMUS
     Dosage: UNK
  7. GRAN [Concomitant]
     Active Substance: FILGRASTIM
     Dosage: UNK
  8. MULTAMIN [VITAMINS NOS] [Concomitant]
     Dosage: UNK
  9. KCL [Concomitant]
     Active Substance: POTASSIUM CHLORIDE
     Dosage: UNK
  10. PIARLE [Concomitant]
     Active Substance: LACTULOSE
     Dosage: UNK
  11. SOLU-MEDROL [Concomitant]
     Active Substance: METHYLPREDNISOLONE SODIUM SUCCINATE
     Dosage: UNK
     Route: 042
  12. VFEND [Suspect]
     Active Substance: VORICONAZOLE
     Indication: FUNGAL INFECTION
     Dosage: 68 MG, 2X/DAY
     Route: 041
     Dates: start: 20200110, end: 20200118
  13. HISHIPHAGEN C [CYSTEINE HYDROCHLORIDE;GLYCINE;GLYCYRRHIZIC ACID, AMMON [Concomitant]
     Dosage: UNK
     Route: 042
  14. URSO [Concomitant]
     Active Substance: URSODIOL
     Dosage: UNK
  15. GENTACIN [Concomitant]
     Active Substance: GENTAMICIN SULFATE
     Dosage: UNK
  16. ACICLOVIR TEVA [Concomitant]
     Active Substance: ACYCLOVIR
     Dosage: UNK
     Route: 041
  17. GABEXATE MESILATE [Concomitant]
     Active Substance: GABEXATE MESYLATE
     Dosage: UNK
  18. ACELIO [Concomitant]
     Active Substance: ACETAMINOPHEN
     Dosage: UNK
     Route: 042
  19. MEROPENEM TOWA [Concomitant]
     Dosage: UNK
     Route: 041
  20. OMEPRAZOLE. [Concomitant]
     Active Substance: OMEPRAZOLE
     Dosage: UNK
  21. SODIUM CHLORIDE. [Concomitant]
     Active Substance: SODIUM CHLORIDE
     Dosage: UNK
  22. ONOACT [Concomitant]
     Active Substance: LANDIOLOL HYDROCHLORIDE
     Dosage: UNK
     Route: 041
  23. AMINOLEBAN [Concomitant]
     Active Substance: AMINO ACIDS, SOURCE UNSPECIFIED
     Dosage: UNK
     Route: 041
  24. MAGNESIUM SULFATE. [Concomitant]
     Active Substance: MAGNESIUM SULFATE
     Dosage: UNK
  25. SAMTIREL [Suspect]
     Active Substance: ATOVAQUONE
     Indication: PNEUMOCYSTIS JIROVECII PNEUMONIA
     Dosage: 10 ML, 1X/DAY
     Route: 048
     Dates: start: 20200106, end: 20200118

REACTIONS (12)
  - Bacteraemia [Fatal]
  - Infection [Fatal]
  - Off label use [Unknown]
  - Pneumonia [Fatal]
  - Alanine aminotransferase increased [Unknown]
  - Toxic epidermal necrolysis [Recovering/Resolving]
  - Aspartate aminotransferase increased [Unknown]
  - Blood creatine phosphokinase decreased [Unknown]
  - Blood urea decreased [Unknown]
  - Haemophagocytic lymphohistiocytosis [Fatal]
  - Altered state of consciousness [Unknown]
  - C-reactive protein increased [Unknown]

NARRATIVE: CASE EVENT DATE: 20200114
